FAERS Safety Report 5989952-6 (Version None)
Quarter: 2008Q4

REPORT INFORMATION
  Report Type: 
  Country: None (occurrence: None)
  Receive Date: 20081211
  Receipt Date: 20080612
  Transmission Date: 20090506
  Serious: No
  Sender: FDA-Public Use
  Company Number: US-BAYER-200826487NA

PATIENT

DRUGS (1)
  1. MIRENA [Suspect]

REACTIONS (1)
  - SUPPRESSED LACTATION [None]
